FAERS Safety Report 9939073 (Version 1)
Quarter: 2014Q1

REPORT INFORMATION
  Report Type: Report from Study
  Country: US (occurrence: US)
  Receive Date: 20140303
  Receipt Date: 20140303
  Transmission Date: 20141002
  Serious: No
  Sender: FDA-Public Use
  Company Number: US-ABBVIE-13P-163-1036942-00

PATIENT
  Age: 53 Year
  Sex: Male

DRUGS (8)
  1. HUMIRA [Suspect]
     Indication: CROHN^S DISEASE
     Dosage: LOADING DOSE
     Dates: start: 20130111
  2. NORVASC [Concomitant]
     Indication: HYPERTENSION
     Dosage: 10MG DAILY
  3. BENICAR [Concomitant]
     Indication: HYPERTENSION
     Dosage: 40/25MG DAILY
  4. VYVANSE [Concomitant]
     Indication: ANXIETY
     Dosage: 50MG DAILY
  5. VYVANSE [Concomitant]
     Indication: DEPRESSION
  6. CYMBALTA [Concomitant]
     Indication: ANXIETY
     Dosage: 90MG DAILY
  7. CYMBALTA [Concomitant]
     Indication: DEPRESSION
  8. PRILOSEC [Concomitant]
     Indication: GASTROOESOPHAGEAL REFLUX DISEASE
     Dosage: 40MG DAILY

REACTIONS (3)
  - Upper-airway cough syndrome [Not Recovered/Not Resolved]
  - Cough [Not Recovered/Not Resolved]
  - Sputum discoloured [Not Recovered/Not Resolved]
